FAERS Safety Report 10896807 (Version 1)
Quarter: 2015Q1

REPORT INFORMATION
  Report Type: Spontaneous
  Country: IT (occurrence: IT)
  Receive Date: 20150309
  Receipt Date: 20150309
  Transmission Date: 20150721
  Serious: Yes (Hospitalization)
  Sender: FDA-Public Use
  Company Number: IT-ALVOGEN-2015AL001150

PATIENT
  Age: 74 Year
  Sex: Female

DRUGS (1)
  1. ATENOLOL AND CHLORTHALIDONE [Suspect]
     Active Substance: ATENOLOL\CHLORTHALIDONE
     Indication: HYPERTENSION
     Route: 048
     Dates: start: 20140917, end: 20150124

REACTIONS (6)
  - Dry throat [Recovering/Resolving]
  - Anxiety [Recovering/Resolving]
  - Blood creatine phosphokinase increased [None]
  - Peripheral coldness [Recovering/Resolving]
  - Blood potassium decreased [None]
  - Tremor [Recovering/Resolving]

NARRATIVE: CASE EVENT DATE: 20150119
